FAERS Safety Report 8548368 (Version 4)
Quarter: 2012Q4

REPORT INFORMATION
  Report Type: Spontaneous
  Country: FR (occurrence: None)
  Receive Date: 20120427
  Receipt Date: 20120925
  Transmission Date: 20130627
  Serious: Yes (Hospitalization, Disabling, Other)
  Sender: FDA-Public Use
  Company Number: FR-1191674

PATIENT
  Age: 69 Year
  Sex: Female

DRUGS (3)
  1. TRAVATAN [Suspect]
     Indication: GLAUCOMA
     Dosage: OPHTHALMIC
     Route: 047
     Dates: start: 20120110, end: 20120220
  2. AZOPT [Suspect]
     Dosage: OPHTHALMIC
     Route: 047
  3. ACETAMINOPHEN [Concomitant]

REACTIONS (9)
  - Respiratory distress [None]
  - Diaphragmatic paralysis [None]
  - Constipation [None]
  - Phrenic nerve paralysis [None]
  - Musculoskeletal pain [None]
  - Discomfort [None]
  - Activities of daily living impaired [None]
  - Abasia [None]
  - Speech disorder [None]
